FAERS Safety Report 17468144 (Version 1)
Quarter: 2020Q1

REPORT INFORMATION
  Report Type: Spontaneous
  Country: US (occurrence: US)
  Receive Date: 20200227
  Receipt Date: 20200227
  Transmission Date: 20200409
  Serious: Yes (Disabling)
  Sender: FDA-Public Use
  Company Number: None

PATIENT
  Age: 13 Year
  Sex: Female
  Weight: 45 kg

DRUGS (4)
  1. CLARITIN [Concomitant]
     Active Substance: LORATADINE
  2. XOPENEX [Concomitant]
     Active Substance: LEVALBUTEROL HYDROCHLORIDE
  3. SINGULAIR [Suspect]
     Active Substance: MONTELUKAST SODIUM
     Indication: ASTHMA
     Route: 048
  4. SINGULAIR [Suspect]
     Active Substance: MONTELUKAST SODIUM
     Indication: HYPERSENSITIVITY
     Route: 048

REACTIONS (4)
  - Anxiety [None]
  - Suicidal ideation [None]
  - Gastrointestinal disorder [None]
  - Insomnia [None]

NARRATIVE: CASE EVENT DATE: 20180212
